FAERS Safety Report 16721045 (Version 1)
Quarter: 2019Q3

REPORT INFORMATION
  Report Type: Spontaneous
  Country: US (occurrence: US)
  Receive Date: 20190820
  Receipt Date: 20190820
  Transmission Date: 20191005
  Serious: No
  Sender: FDA-Public Use
  Company Number: US-AMGEN-USASP2019130117

PATIENT
  Age: 64 Year
  Sex: Male

DRUGS (3)
  1. IRINOTECAN [Concomitant]
     Active Substance: IRINOTECAN
     Indication: COLON CANCER
     Dosage: UNK
  2. PANITUMUMAB [Suspect]
     Active Substance: PANITUMUMAB
     Indication: COLON CANCER
     Dosage: UNK
     Route: 065
  3. PANITUMUMAB [Suspect]
     Active Substance: PANITUMUMAB
     Dosage: UNK (DECREASED DOSE TO 1/3)
     Route: 065

REACTIONS (5)
  - Drug eruption [Recovered/Resolved]
  - Decreased appetite [Unknown]
  - Skin infection [Recovering/Resolving]
  - Photosensitivity reaction [Recovering/Resolving]
  - Rash [Recovered/Resolved]
